FAERS Safety Report 9360636 (Version 3)
Quarter: 2013Q3

REPORT INFORMATION
  Report Type: Spontaneous
  Country: IT (occurrence: IT)
  Receive Date: 20130621
  Receipt Date: 20130710
  Transmission Date: 20140515
  Serious: Yes (Other)
  Sender: FDA-Public Use
  Company Number: IT-VERTEX PHARMACEUTICALS INC-2013-007281

PATIENT
  Age: 50 Year
  Sex: Male
  Weight: 55 kg

DRUGS (3)
  1. INCIVO [Suspect]
     Indication: CHRONIC HEPATITIS C
     Dosage: UNK
     Route: 048
  2. RIBAVIRINE [Concomitant]
     Indication: CHRONIC HEPATITIS C
     Dosage: DOSAGE FORM: CAPSULE, HARD
     Route: 065
  3. PEG INTERFERON [Concomitant]
     Indication: CHRONIC HEPATITIS C
     Dosage: DOSAGE FORM: SOLUTION FOR INJECTION
     Route: 065

REACTIONS (3)
  - Dyspnoea [Recovered/Resolved]
  - Scratch [Unknown]
  - Pruritus [Recovered/Resolved]
